FAERS Safety Report 8159466-6 (Version None)
Quarter: 2012Q1

REPORT INFORMATION
  Report Type: 
  Country: None (occurrence: None)
  Receive Date: 20120223
  Receipt Date: 20120217
  Transmission Date: 20120608
  Serious: Yes (Other)
  Sender: FDA-Public Use
  Company Number: US-PFIZER INC-2011300523

PATIENT
  Sex: Female

DRUGS (1)
  1. CHAPSTICK LIP BALM [Suspect]
     Dosage: UNK
     Route: 061

REACTIONS (2)
  - DEPENDENCE [None]
  - OROPHARYNGEAL BLISTERING [None]
